FAERS Safety Report 10923938 (Version 1)
Quarter: 2015Q1

REPORT INFORMATION
  Report Type: Spontaneous
  Country: US (occurrence: US)
  Receive Date: 20150318
  Receipt Date: 20150318
  Transmission Date: 20150721
  Serious: No
  Sender: FDA-Public Use
  Company Number: US-BIOGENIDEC-2015BI030900

PATIENT
  Sex: Female

DRUGS (1)
  1. TECFIDERA [Suspect]
     Active Substance: DIMETHYL FUMARATE
     Indication: PRODUCT USED FOR UNKNOWN INDICATION
     Dates: start: 20141001

REACTIONS (5)
  - Feeling abnormal [Unknown]
  - Feeling hot [Unknown]
  - Hyperhidrosis [Unknown]
  - Asthenia [Unknown]
  - Peripheral coldness [Unknown]
